FAERS Safety Report 14925269 (Version 3)
Quarter: 2018Q3

REPORT INFORMATION
  Report Type: Report from Study
  Country: US (occurrence: US)
  Receive Date: 20180522
  Receipt Date: 20180703
  Transmission Date: 20181010
  Serious: No
  Sender: FDA-Public Use
  Company Number: PHEH2018US018779

PATIENT
  Sex: Female
  Weight: 41.73 kg

DRUGS (2)
  1. COSENTYX [Suspect]
     Active Substance: SECUKINUMAB
     Indication: PSORIASIS
  2. COSENTYX [Suspect]
     Active Substance: SECUKINUMAB
     Indication: PSORIATIC ARTHROPATHY
     Dosage: 300 MG (2 PENS OF 150 MG,) QMO (EVERY 4 WEEKS)
     Route: 058

REACTIONS (7)
  - Headache [Unknown]
  - Swollen tongue [Unknown]
  - Dysphagia [Unknown]
  - Rash [Unknown]
  - Hypersensitivity [Unknown]
  - Skin burning sensation [Unknown]
  - Swelling face [Unknown]
